FAERS Safety Report 14539490 (Version 5)
Quarter: 2018Q2

REPORT INFORMATION
  Report Type: Spontaneous
  Country: US (occurrence: US)
  Receive Date: 20180216
  Receipt Date: 20180621
  Transmission Date: 20180711
  Serious: Yes (Other)
  Sender: FDA-Public Use
  Company Number: US-BEH-2018087855

PATIENT
  Age: 64 Year
  Sex: Female
  Weight: 77.98 kg

DRUGS (27)
  1. HIZENTRA [Suspect]
     Active Substance: HUMAN IMMUNOGLOBULIN G
     Dosage: UNK
     Route: 058
  2. VENLAFAXINE [Concomitant]
     Active Substance: VENLAFAXINE HYDROCHLORIDE
  3. PROBIOTIC                          /06395501/ [Concomitant]
     Active Substance: BIFIDOBACTERIUM ANIMALIS LACTIS
  4. RESTASIS [Concomitant]
     Active Substance: CYCLOSPORINE
  5. CO-Q10-CHLORELLA [Concomitant]
  6. FLUTICASONE. [Concomitant]
     Active Substance: FLUTICASONE
  7. BENADRYL [Concomitant]
     Active Substance: DIPHENHYDRAMINE HYDROCHLORIDE
  8. BUDESONIDE. [Concomitant]
     Active Substance: BUDESONIDE
  9. THERATEARS [Concomitant]
     Active Substance: CARBOXYMETHYLCELLULOSE SODIUM
  10. ACETAMINOPHEN. [Concomitant]
     Active Substance: ACETAMINOPHEN
  11. HIZENTRA [Suspect]
     Active Substance: HUMAN IMMUNOGLOBULIN G
     Indication: IMMUNODEFICIENCY COMMON VARIABLE
     Dosage: 10 G, WEEKLY
     Route: 058
     Dates: start: 20180125
  12. HIZENTRA [Suspect]
     Active Substance: HUMAN IMMUNOGLOBULIN G
     Dosage: UNK
     Route: 058
  13. DICLOFENAC [Concomitant]
     Active Substance: DICLOFENAC
  14. COMPAZINE                          /00013302/ [Concomitant]
     Active Substance: PROCHLORPERAZINE EDISYLATE
  15. LIDOCAINE. [Concomitant]
     Active Substance: LIDOCAINE
  16. DIPHENHYDRAMINE. [Concomitant]
     Active Substance: DIPHENHYDRAMINE
  17. BOTOX [Concomitant]
     Active Substance: ONABOTULINUMTOXINA
  18. ONDANSETRON [Concomitant]
     Active Substance: ONDANSETRON
  19. HIZENTRA [Suspect]
     Active Substance: HUMAN IMMUNOGLOBULIN G
     Dosage: UNK
     Route: 058
  20. CLONAZEPAM. [Concomitant]
     Active Substance: CLONAZEPAM
  21. TEMAZEPAM. [Concomitant]
     Active Substance: TEMAZEPAM
  22. MAGNESIUM [Concomitant]
     Active Substance: MAGNESIUM
  23. BIOTIN [Concomitant]
     Active Substance: BIOTIN
  24. MELATONIN [Concomitant]
     Active Substance: MELATONIN
  25. EPINEPHRINE. [Concomitant]
     Active Substance: EPINEPHRINE
  26. MAXALT [Concomitant]
     Active Substance: RIZATRIPTAN BENZOATE
  27. BUPROPION. [Concomitant]
     Active Substance: BUPROPION

REACTIONS (10)
  - Pain [Unknown]
  - Neoplasm [Unknown]
  - Back pain [Unknown]
  - Headache [Unknown]
  - Bone neoplasm [Unknown]
  - Infusion site pain [Recovered/Resolved]
  - Nausea [Unknown]
  - Fatigue [Unknown]
  - Brain neoplasm benign [Unknown]
  - Neck pain [Unknown]
